FAERS Safety Report 18738567 (Version 2)
Quarter: 2021Q1

REPORT INFORMATION
  Report Type: Spontaneous
  Country: US (occurrence: US)
  Receive Date: 20210114
  Receipt Date: 20210223
  Transmission Date: 20210419
  Serious: Yes (Hospitalization)
  Sender: FDA-Public Use
  Company Number: US-TEVA-2021-US-1867370

PATIENT
  Age: 72 Year
  Sex: Male

DRUGS (4)
  1. TAXOL [Suspect]
     Active Substance: PACLITAXEL
     Indication: OESOPHAGEAL ADENOCARCINOMA
     Route: 065
  2. TAXOL [Suspect]
     Active Substance: PACLITAXEL
     Indication: OESOPHAGEAL ADENOCARCINOMA
  3. CARBOPLATIN. [Suspect]
     Active Substance: CARBOPLATIN
     Indication: OESOPHAGEAL ADENOCARCINOMA
     Route: 065
  4. CARBOPLATIN. [Suspect]
     Active Substance: CARBOPLATIN
     Indication: OESOPHAGEAL ADENOCARCINOMA

REACTIONS (2)
  - COVID-19 [Unknown]
  - Neutropenic colitis [Unknown]
